FAERS Safety Report 13887049 (Version 1)
Quarter: 2017Q3

REPORT INFORMATION
  Report Type: Report from Study
  Country: US (occurrence: US)
  Receive Date: 20170821
  Receipt Date: 20170821
  Transmission Date: 20171127
  Serious: Yes (Other)
  Sender: FDA-Public Use
  Company Number: US-BAYER-2017-154463

PATIENT
  Age: 86 Year
  Sex: Male

DRUGS (2)
  1. FINASTERIDE. [Concomitant]
     Active Substance: FINASTERIDE
  2. STIVARGA [Suspect]
     Active Substance: REGORAFENIB
     Indication: COLON CANCER
     Dosage: 160 MG, QD
     Route: 048
     Dates: start: 2017, end: 2017

REACTIONS (6)
  - Gait inability [Not Recovered/Not Resolved]
  - Confusional state [Not Recovered/Not Resolved]
  - Neuropathy peripheral [Not Recovered/Not Resolved]
  - Intentional product misuse [None]
  - Pain in extremity [Not Recovered/Not Resolved]
  - Stomatitis [Not Recovered/Not Resolved]

NARRATIVE: CASE EVENT DATE: 20170721
